FAERS Safety Report 5878713-4 (Version None)
Quarter: 2008Q3

REPORT INFORMATION
  Report Type: 
  Country: None (occurrence: None)
  Receive Date: 20080912
  Receipt Date: 20080904
  Transmission Date: 20090109
  Serious: Yes (Hospitalization)
  Sender: FDA-Public Use
  Company Number: US-JNJFOC-20080901802

PATIENT
  Age: 51 Year
  Sex: Female
  Weight: 66 kg

DRUGS (11)
  1. RISPERIDONE [Suspect]
     Indication: DRUG USE FOR UNKNOWN INDICATION
     Route: 048
  2. PROCARDIA XL [Concomitant]
  3. OMEPRAZOLE [Concomitant]
  4. PHOSLO [Concomitant]
  5. FOLIC ACID [Concomitant]
  6. LABETALOL HCL [Concomitant]
  7. LORAZEPAM [Concomitant]
  8. WARFARIN SODIUM [Concomitant]
  9. AMBION [Concomitant]
  10. DIOVAN [Concomitant]
  11. SENSIPAR [Concomitant]

REACTIONS (2)
  - HOSPITALISATION [None]
  - HYPOGLYCAEMIA [None]
